FAERS Safety Report 13330470 (Version 1)
Quarter: 2017Q1

REPORT INFORMATION
  Report Type: Spontaneous
  Country: DE (occurrence: DE)
  Receive Date: 20170313
  Receipt Date: 20170313
  Transmission Date: 20170428
  Serious: Yes (Death, Other)
  Sender: FDA-Public Use
  Company Number: DE-MYLANLABS-2017M1015309

PATIENT

DRUGS (1)
  1. MELPHALAN [Suspect]
     Active Substance: MELPHALAN
     Indication: PLASMA CELL MYELOMA
     Dosage: HIGH DOSAGE CHEMOTHERAPY
     Route: 065

REACTIONS (5)
  - Aspergillus infection [Fatal]
  - Septic shock [Fatal]
  - Pseudallescheria infection [Fatal]
  - Pneumonia fungal [Fatal]
  - Acute respiratory distress syndrome [Fatal]
